FAERS Safety Report 16357762 (Version 3)
Quarter: 2019Q2

REPORT INFORMATION
  Report Type: Report from Study
  Country: US (occurrence: US)
  Receive Date: 20190527
  Receipt Date: 20190628
  Transmission Date: 20190711
  Serious: Yes (Hospitalization)
  Sender: FDA-Public Use
  Company Number: PHHO2019US005449

PATIENT
  Age: 9 Year
  Sex: Male

DRUGS (14)
  1. METHOTREXAT [Suspect]
     Active Substance: METHOTREXATE
     Dosage: 13.75 MG, QW
     Route: 048
     Dates: start: 20190320, end: 20190508
  2. METHOTREXAT [Suspect]
     Active Substance: METHOTREXATE
     Dosage: 12 MG, (DAY 1 OF EACH MAINTENANCE CYCLE)
     Route: 037
     Dates: start: 20190522
  3. VINCRISTINE [Suspect]
     Active Substance: VINCRISTINE
     Indication: ACUTE LYMPHOCYTIC LEUKAEMIA
     Dosage: 2 MG, DAYS 1, 29, 57
     Route: 042
     Dates: start: 20190320
  4. MERCAPTOPURINE. [Suspect]
     Active Substance: MERCAPTOPURINE
     Dosage: 75 MILLIGRAM, QD
     Route: 048
     Dates: start: 20190417, end: 20190516
  5. METHOTREXAT [Suspect]
     Active Substance: METHOTREXATE
     Dosage: 20 MG, QW
     Route: 048
     Dates: start: 20190515, end: 20190516
  6. MERCAPTOPURINE. [Suspect]
     Active Substance: MERCAPTOPURINE
     Indication: ACUTE LYMPHOCYTIC LEUKAEMIA
     Dosage: 50 MILLIGRAM, QD
     Route: 048
     Dates: start: 20190320, end: 20190416
  7. MERCAPTOPURINE. [Suspect]
     Active Substance: MERCAPTOPURINE
     Dosage: 75 MILLIGRAM, QD
     Route: 048
     Dates: start: 20190517
  8. METHOTREXAT [Suspect]
     Active Substance: METHOTREXATE
     Indication: ACUTE LYMPHOCYTIC LEUKAEMIA
     Dosage: 20 MG, QW
     Route: 048
     Dates: start: 20190327
  9. METHOTREXAT [Suspect]
     Active Substance: METHOTREXATE
     Dosage: 20 MG, QW
     Route: 048
     Dates: start: 20190522
  10. PREDNISONE. [Suspect]
     Active Substance: PREDNISONE
     Indication: ACUTE LYMPHOCYTIC LEUKAEMIA
     Dosage: 25 MILLIGRAM, BID, DAYS 1-5; 29-33; 57-61
     Route: 065
     Dates: start: 20190327, end: 20190516
  11. INC424A [Suspect]
     Active Substance: RUXOLITINIB
     Indication: ACUTE LYMPHOCYTIC LEUKAEMIA
     Dosage: 50 MG, BID
     Route: 048
     Dates: start: 20190320, end: 20190517
  12. PREDNISONE. [Suspect]
     Active Substance: PREDNISONE
     Dosage: 25 MILLIGRAM, BID (DAYS 1-5; 29-33; 57-61 OF EACH MAINTENANCE CYCLE)
     Route: 048
     Dates: start: 20190327, end: 20190516
  13. PREDNISONE. [Suspect]
     Active Substance: PREDNISONE
     Dosage: 25 MILLIGRAM, BID, DAYS 1-5; 29-33; 57-61
     Route: 048
     Dates: start: 20190517
  14. INC424A [Suspect]
     Active Substance: RUXOLITINIB
     Dosage: 55 MG, BID
     Route: 048
     Dates: start: 20190515, end: 20190516

REACTIONS (2)
  - Tachycardia [Recovered/Resolved]
  - Pyrexia [Recovered/Resolved]

NARRATIVE: CASE EVENT DATE: 20190516
